FAERS Safety Report 8844565 (Version 2)
Quarter: 2013Q1

REPORT INFORMATION
  Report Type: Spontaneous
  Country: ES (occurrence: None)
  Receive Date: 20121012
  Receipt Date: 20121108
  Transmission Date: 20140127
  Serious: Yes (Hospitalization)
  Sender: FDA-Public Use
  Company Number: 2012AP003308

PATIENT
  Age: 65 Year
  Sex: Male

DRUGS (5)
  1. OMEPRAZOLE (OMEPRAZOLE) [Suspect]
     Indication: GASTROOESOPHAGEAL REFLUX DISEASE
  2. HYDROCHLOROTHIAZIDE\VALSARTAN [Suspect]
     Indication: HYPERTENSION
  3. DOXAZOSIN (DOXAZOSIN) [Concomitant]
  4. WARFARIN (WARFARIN) [Concomitant]
  5. LEVETIRACETAM (LEVETIRACETAM) [Concomitant]

REACTIONS (4)
  - Hypomagnesaemia [None]
  - Hypocalcaemia [None]
  - Hypokalaemia [None]
  - Grand mal convulsion [None]
